FAERS Safety Report 6737786-7 (Version None)
Quarter: 2010Q2

REPORT INFORMATION
  Report Type: 
  Country: None (occurrence: None)
  Receive Date: 20100524
  Receipt Date: 20100513
  Transmission Date: 20101027
  Serious: Yes (Disabling)
  Sender: FDA-Public Use
  Company Number: CA-ASTRAZENECA-2010SE15408

PATIENT
  Age: 67 Year
  Sex: Male

DRUGS (13)
  1. METOPROLOL TARTRATE [Suspect]
     Route: 048
     Dates: start: 20100101
  2. CRESTOR [Suspect]
     Indication: BLOOD CHOLESTEROL INCREASED
     Route: 048
     Dates: start: 20100115, end: 20100301
  3. CRESTOR [Suspect]
     Route: 048
     Dates: start: 20100410
  4. LIPITOR [Suspect]
     Dates: start: 20100122, end: 20100129
  5. LIPITOR [Suspect]
     Dates: start: 20100129
  6. ATENOLOL [Concomitant]
  7. SERTRALINE HCL [Concomitant]
  8. SYNTHROID [Concomitant]
     Indication: HYPOTHYROIDISM
  9. ASPIRIN [Concomitant]
  10. PLAVIX [Concomitant]
  11. ZOLOFT [Concomitant]
  12. PANTOPRAZOLE [Concomitant]
  13. NITRO SPRAY [Concomitant]
     Indication: MUSCULOSKELETAL PAIN

REACTIONS (5)
  - DEAFNESS [None]
  - DIPLOPIA [None]
  - DIZZINESS [None]
  - HEADACHE [None]
  - ORTHOSTATIC HYPOTENSION [None]
